FAERS Safety Report 22160100 (Version 2)
Quarter: 2024Q1

REPORT INFORMATION
  Report Type: Other
  Country: JP (occurrence: JP)
  Receive Date: 20230331
  Receipt Date: 20240301
  Transmission Date: 20240410
  Serious: Yes (Death, Hospitalization, Other)
  Sender: FDA-Public Use
  Company Number: JP-CHUGAI-2023011051AA

PATIENT
  Age: 85 Year
  Sex: Male
  Weight: 53.5 kg

DRUGS (20)
  1. ATEZOLIZUMAB [Suspect]
     Active Substance: ATEZOLIZUMAB
     Indication: Hepatocellular carcinoma
     Route: 041
     Dates: start: 20211027, end: 20211221
  2. BEVACIZUMAB [Suspect]
     Active Substance: BEVACIZUMAB
     Indication: Hepatocellular carcinoma
     Route: 041
     Dates: start: 20211027, end: 20211221
  3. HEPAACT [Concomitant]
     Indication: Hepatic failure
     Dosage: 4.5 GRAM, TID
     Route: 048
     Dates: start: 20211025
  4. MIYA-BM [Concomitant]
     Active Substance: CLOSTRIDIUM BUTYRICUM SPORES STRAIN M-55
     Indication: Constipation
     Dosage: 20 MILLIGRAM, TID
     Route: 048
     Dates: start: 20211101
  5. ACETAMINOPHEN\TRAMADOL HYDROCHLORIDE [Concomitant]
     Active Substance: ACETAMINOPHEN\TRAMADOL HYDROCHLORIDE
     Indication: Pain
     Dosage: UNK UNK, TID
     Route: 048
     Dates: start: 20211118
  6. SPIRONOLACTONE [Concomitant]
     Active Substance: SPIRONOLACTONE
     Indication: Ascites
     Dosage: 25 MILLIGRAM, QD
     Route: 048
     Dates: start: 20211021
  7. ATORVASTATIN CALCIUM TRIHYDRATE [Concomitant]
     Active Substance: ATORVASTATIN CALCIUM TRIHYDRATE
     Indication: Lipids abnormal
     Dosage: 10 MILLIGRAM, QD
     Route: 048
     Dates: start: 20211031
  8. FUROSEMIDE [Concomitant]
     Active Substance: FUROSEMIDE
     Indication: Ascites
     Dosage: 40 MILLIGRAM, QD
     Route: 048
     Dates: start: 20211031
  9. NEXIUM [Concomitant]
     Active Substance: ESOMEPRAZOLE MAGNESIUM
     Indication: Gastrooesophageal reflux disease
     Dosage: 20 MILLIGRAM, QD
     Route: 048
     Dates: start: 20211025
  10. ASPIRIN [Concomitant]
     Active Substance: ASPIRIN
     Indication: Myocardial infarction
     Dosage: 100 MILLIGRAM, QD
     Route: 048
     Dates: start: 20211030
  11. NIFEDIPINE [Concomitant]
     Active Substance: NIFEDIPINE
     Indication: Blood pressure increased
     Dosage: 20 MILLIGRAM, QD
     Route: 048
     Dates: start: 20211221
  12. METILDIGOXIN [Concomitant]
     Active Substance: METILDIGOXIN
     Indication: Myocardial infarction
     Dosage: 0.05 MILLIGRAM, QD
     Route: 048
  13. RABEPRAZOLE SODIUM [Concomitant]
     Active Substance: RABEPRAZOLE SODIUM
     Indication: Gastrooesophageal reflux disease
     Dosage: 10 MILLIGRAM, QD
     Route: 048
  14. FEBUXOSTAT [Concomitant]
     Active Substance: FEBUXOSTAT
     Indication: Gout
     Dosage: 10 MILLIGRAM, QD
     Route: 048
  15. AMLODIPINE BESYLATE\IRBESARTAN [Concomitant]
     Active Substance: AMLODIPINE BESYLATE\IRBESARTAN
     Indication: Hypertension
     Dosage: UNK, QD
     Route: 048
  16. LIPITOR [Concomitant]
     Active Substance: ATORVASTATIN CALCIUM
     Indication: Lipids abnormal
     Dosage: 5 MILLIGRAM, QD
     Route: 048
  17. LASIX [Concomitant]
     Active Substance: FUROSEMIDE
     Indication: Myocardial infarction
     Dosage: 40 MILLIGRAM, BID
     Route: 048
  18. BEPRIDIL [Concomitant]
     Active Substance: BEPRIDIL
     Indication: Myocardial infarction
     Dosage: 50 MILLIGRAM, BID
     Route: 048
  19. SENNOSIDES A AND B [Concomitant]
     Active Substance: SENNOSIDES A AND B
     Indication: Constipation
     Dosage: 50 MILLIGRAM, QD
     Route: 048
  20. LACTULOSE [Concomitant]
     Active Substance: LACTULOSE
     Indication: Constipation
     Dosage: 20 MILLILITER, PRN
     Route: 048

REACTIONS (10)
  - Hepatocellular carcinoma [Fatal]
  - Decreased appetite [Recovered/Resolved]
  - Fracture [Not Recovered/Not Resolved]
  - Pneumonia [Unknown]
  - Tumour necrosis [Unknown]
  - Liver disorder [Recovered/Resolved]
  - Fall [Unknown]
  - Pyrexia [Unknown]
  - Metastases to bone [Unknown]
  - Hypertension [Unknown]

NARRATIVE: CASE EVENT DATE: 20211031
